FAERS Safety Report 7589576-3 (Version None)
Quarter: 2011Q3

REPORT INFORMATION
  Report Type: 
  Country: None (occurrence: None)
  Receive Date: 20110705
  Receipt Date: 20110622
  Transmission Date: 20111222
  Serious: Yes (Hospitalization)
  Sender: FDA-Public Use
  Company Number: DE-ROCHE-786535

PATIENT
  Sex: Female
  Weight: 57.7 kg

DRUGS (4)
  1. VERGENTAN [Concomitant]
     Indication: PROPHYLAXIS
     Dosage: THIRD CYCLE GIVEN ON 08 JUN 2011
     Route: 042
  2. BEVACIZUMAB [Suspect]
     Indication: BREAST CANCER
     Dosage: THIRD CYCLE GIVEN ON 08 JUN 2011
     Route: 042
  3. ABRAXANE [Suspect]
     Indication: BREAST CANCER
     Dosage: THIRD CYCLE GIVEN ON 08 JUN 2011
     Route: 042
  4. DEXAMETHASONE [Concomitant]
     Indication: PROPHYLAXIS
     Dosage: THIRD CYCLE GIVEN ON 08 JUN 2011

REACTIONS (2)
  - CERVICAL POLYP [None]
  - VAGINAL HAEMORRHAGE [None]
